FAERS Safety Report 23181493 (Version 1)
Quarter: 2023Q4

REPORT INFORMATION
  Report Type: Spontaneous
  Country: CN (occurrence: CN)
  Receive Date: 20231114
  Receipt Date: 20231114
  Transmission Date: 20240110
  Serious: Yes (Other)
  Sender: FDA-Public Use
  Company Number: CN-002147023-NVSC2023CN240456

PATIENT

DRUGS (2)
  1. SACUBITRIL\VALSARTAN [Suspect]
     Active Substance: SACUBITRIL\VALSARTAN
     Indication: Cardiac failure acute
     Dosage: INITIAL DOSE OF 50 MG, BID (ONCE AFTER BREAKFAST AND ONCE AFTER DINNER, ACCORDING TO THE CONDITION O
     Route: 065
  2. SACUBITRIL\VALSARTAN [Suspect]
     Active Substance: SACUBITRIL\VALSARTAN
     Indication: Pulmonary arterial hypertension
     Dosage: THE DOSE WAS INCREASED ONCE EVERY 2 WEEKS
     Route: 065

REACTIONS (1)
  - Angioedema [Unknown]
